FAERS Safety Report 9747043 (Version 1)
Quarter: 2013Q4

REPORT INFORMATION
  Report Type: Spontaneous
  Country: US (occurrence: US)
  Receive Date: 20131211
  Receipt Date: 20131211
  Transmission Date: 20140711
  Serious: Yes (Life-Threatening, Hospitalization, Other)
  Sender: FDA-Public Use
  Company Number: US-PFIZER INC-2013349417

PATIENT
  Age: 62 Year
  Sex: Female

DRUGS (6)
  1. RIFAMPIN [Suspect]
     Dosage: 600 MG, DAILY
  2. METOPROLOL [Concomitant]
     Dosage: 25 MG, UNK
  3. ATORVASTATIN [Concomitant]
     Dosage: 20 MG, UNK
  4. CALCIUM [Concomitant]
     Dosage: UNK
  5. VITAMIN D [Concomitant]
     Dosage: UNK
  6. MULTIVITAMINS [Concomitant]
     Dosage: DAILY

REACTIONS (1)
  - Angioedema [Recovered/Resolved]
